FAERS Safety Report 9569915 (Version 2)
Quarter: 2014Q1

REPORT INFORMATION
  Report Type: Spontaneous
  Country: US (occurrence: US)
  Receive Date: 20130930
  Receipt Date: 20140226
  Transmission Date: 20141002
  Serious: No
  Sender: FDA-Public Use
  Company Number: US-AMGEN-USASP2013065701

PATIENT
  Age: 41 Year
  Sex: Female
  Weight: 62 kg

DRUGS (7)
  1. ENBREL [Suspect]
     Indication: PRODUCT USED FOR UNKNOWN INDICATION
     Dosage: 50 MG, QWK
     Route: 058
     Dates: start: 2012
  2. FISH OIL [Concomitant]
     Dosage: UNK
     Route: 048
  3. VITAMIN B COMPLEX [Concomitant]
     Dosage: UNK
     Route: 048
  4. VITAMIN D3 [Concomitant]
     Dosage: 10000 UNIT, UNK
     Route: 048
  5. SINGULAIR [Concomitant]
     Dosage: 10 MG, UNK
     Route: 048
  6. FOLIC ACID [Concomitant]
     Indication: RHEUMATOID ARTHRITIS
     Dosage: 1 MG, QD
     Route: 048
  7. METHOTREXATE [Concomitant]
     Indication: RHEUMATOID ARTHRITIS
     Dosage: 15 MG, QWK
     Route: 048

REACTIONS (1)
  - Fatigue [Recovered/Resolved]
